FAERS Safety Report 25289907 (Version 2)
Quarter: 2025Q2

REPORT INFORMATION
  Report Type: Spontaneous
  Country: FR (occurrence: FR)
  Receive Date: 20250509
  Receipt Date: 20250604
  Transmission Date: 20250717
  Serious: Yes (Other)
  Sender: BOEHRINGER INGELHEIM
  Company Number: FR-STADA-01386388

PATIENT
  Age: 56 Year
  Sex: Male

DRUGS (5)
  1. PRAMIPEXOLE [Suspect]
     Active Substance: PRAMIPEXOLE
     Indication: Parkinson^s disease
  2. PRAMIPEXOLE [Suspect]
     Active Substance: PRAMIPEXOLE
  3. L DOPA [Concomitant]
     Active Substance: LEVODOPA
     Indication: Parkinson^s disease
     Dosage: MORE THAN 2550MG
  4. L DOPA [Concomitant]
     Active Substance: LEVODOPA
  5. L DOPA [Concomitant]
     Active Substance: LEVODOPA

REACTIONS (2)
  - Drug ineffective [Unknown]
  - Impulse-control disorder [Recovered/Resolved]
